FAERS Safety Report 23229156 (Version 1)
Quarter: 2023Q4

REPORT INFORMATION
  Report Type: Spontaneous
  Country: ES (occurrence: ES)
  Receive Date: 20231127
  Receipt Date: 20231127
  Transmission Date: 20240110
  Serious: Yes (Other)
  Sender: FDA-Public Use
  Company Number: ES-AEMPS-1449160

PATIENT
  Age: 3 Year
  Sex: Male

DRUGS (1)
  1. MONTELUKAST [Suspect]
     Active Substance: MONTELUKAST SODIUM
     Indication: Wheezing
     Dosage: 4 MILLIGRAM, ONCE A DAY
     Route: 048
     Dates: start: 20221031, end: 20230815

REACTIONS (1)
  - Dysphemia [Recovered/Resolved]

NARRATIVE: CASE EVENT DATE: 20230715
